FAERS Safety Report 5355703-1 (Version None)
Quarter: 2007Q2

REPORT INFORMATION
  Report Type: 
  Country: None (occurrence: None)
  Receive Date: 20070613
  Receipt Date: 20070531
  Transmission Date: 20071010
  Serious: Yes (Other)
  Sender: FDA-Public Use
  Company Number: IT-AMGEN-UK227446

PATIENT
  Age: 57 Year
  Sex: Male

DRUGS (2)
  1. KINERET [Suspect]
     Indication: JUVENILE ARTHRITIS
     Route: 065
  2. PREDNISONE TAB [Concomitant]
     Route: 065

REACTIONS (1)
  - THROMBOCYTOPENIA [None]
